FAERS Safety Report 4430086-X (Version None)
Quarter: 2004Q3

REPORT INFORMATION
  Report Type: 
  Country: None (occurrence: None)
  Receive Date: 20040817
  Receipt Date: 20040802
  Transmission Date: 20050211
  Serious: Yes (Death, Hospitalization, Other)
  Sender: FDA-Public Use
  Company Number: 03-351-0768-1

PATIENT
  Sex: Male
  Weight: 90.7194 kg

DRUGS (1)
  1. DAUNORUBICIN LIQUID, UNKNOWN STRENGTH, BEN VENUE [Suspect]
     Indication: ACUTE MYELOID LEUKAEMIA
     Dosage: 45MG/M2/OTHER
     Dates: start: 20031015

REACTIONS (4)
  - FEBRILE NEUTROPENIA [None]
  - PANCYTOPENIA [None]
  - RESPIRATORY FAILURE [None]
  - SEPTIC SHOCK [None]
